FAERS Safety Report 6767247-0 (Version None)
Quarter: 2010Q2

REPORT INFORMATION
  Report Type: 
  Country: None (occurrence: None)
  Receive Date: 20100614
  Receipt Date: 20100604
  Transmission Date: 20101027
  Serious: Yes (Disabling)
  Sender: FDA-Public Use
  Company Number: AU-JNJFOC-20100304311

PATIENT
  Sex: Female

DRUGS (2)
  1. SIMPONI [Suspect]
     Indication: RHEUMATOID ARTHRITIS
     Route: 058
  2. AMOXIL [Concomitant]

REACTIONS (5)
  - CROHN'S DISEASE [None]
  - FATIGUE [None]
  - HEADACHE [None]
  - PAIN [None]
  - RASH [None]
